FAERS Safety Report 4452286-5 (Version None)
Quarter: 2004Q3

REPORT INFORMATION
  Report Type: 
  Country: None (occurrence: None)
  Receive Date: 20040917
  Receipt Date: 20030811
  Transmission Date: 20050211
  Serious: Yes (Congenital Anomaly)
  Sender: FDA-Public Use
  Company Number: BR-ROCHE-344667

PATIENT
  Sex: Male
  Weight: 3.5 kg

DRUGS (2)
  1. ROACUTAN [Suspect]
     Indication: ACNE
     Dates: start: 20030714, end: 20030811
  2. CONTRACEPTIVE INJECTABLE [Concomitant]
     Indication: CONTRACEPTION
     Dates: start: 20030115, end: 20030815

REACTIONS (6)
  - CONGENITAL FOOT MALFORMATION [None]
  - CONGENITAL HEARING DISORDER [None]
  - DEAFNESS CONGENITAL [None]
  - DRUG EXPOSURE DURING PREGNANCY [None]
  - EAR MALFORMATION [None]
  - PREGNANCY [None]
